FAERS Safety Report 4452484-0 (Version None)
Quarter: 2004Q3

REPORT INFORMATION
  Report Type: 
  Country: None (occurrence: None)
  Receive Date: 20040916
  Receipt Date: 20040907
  Transmission Date: 20050211
  Serious: Yes (Hospitalization)
  Sender: FDA-Public Use
  Company Number: 2004229491CL

PATIENT
  Age: 44 Year
  Sex: Female
  Weight: 63 kg

DRUGS (4)
  1. BEXTRA [Suspect]
     Indication: MUSCLE CONTRACTURE
     Dosage: 40 MG, QD, ORAL
     Route: 048
     Dates: start: 20040501, end: 20040505
  2. VENLAFAXINE HCL [Concomitant]
  3. ENALAPRIL MALEATE [Concomitant]
  4. HYDROCHLOROTHIAZIDE [Concomitant]

REACTIONS (4)
  - DRUG ERUPTION [None]
  - DRY SKIN [None]
  - FOOD ALLERGY [None]
  - SKIN REACTION [None]
